FAERS Safety Report 5429924-3 (Version None)
Quarter: 2007Q3

REPORT INFORMATION
  Report Type: 
  Country: None (occurrence: None)
  Receive Date: 20070829
  Receipt Date: 20070827
  Transmission Date: 20080115
  Serious: Yes (Hospitalization)
  Sender: FDA-Public Use
  Company Number: US-ROXANE LABORATORIES, INC-2007-DE-04873GD

PATIENT
  Age: 47 Year
  Sex: Male

DRUGS (9)
  1. MORPHINE [Suspect]
     Indication: NEURALGIA
  2. MORPHINE [Suspect]
     Indication: MYOFASCIAL PAIN SYNDROME
  3. MORPHINE [Suspect]
     Indication: ARTHRALGIA
  4. HYDROMORPHONE HCL [Suspect]
     Indication: NEURALGIA
  5. HYDROMORPHONE HCL [Suspect]
     Indication: MYOFASCIAL PAIN SYNDROME
  6. HYDROMORPHONE HCL [Suspect]
     Indication: ARTHRALGIA
  7. METHADONE HCL [Suspect]
     Indication: NEURALGIA
  8. METHADONE HCL [Suspect]
     Indication: MYOFASCIAL PAIN SYNDROME
  9. METHADONE HCL [Suspect]
     Indication: ARTHRALGIA

REACTIONS (2)
  - DRUG INEFFECTIVE [None]
  - DRUG TOLERANCE [None]
